FAERS Safety Report 7051620-X (Version None)
Quarter: 2010Q4

REPORT INFORMATION
  Report Type: 
  Country: None (occurrence: None)
  Receive Date: 20101019
  Receipt Date: 20101005
  Transmission Date: 20110411
  Serious: Yes (Hospitalization)
  Sender: FDA-Public Use
  Company Number: US-ELI_LILLY_AND_COMPANY-US201010001576

PATIENT
  Age: 69 Year
  Sex: Female

DRUGS (9)
  1. FORTEO [Suspect]
     Indication: OSTEOPOROSIS
     Dosage: 20 UG, DAILY (1/D)
  2. COUMADIN [Concomitant]
  3. LYRICA [Concomitant]
  4. OXYCONTIN [Concomitant]
  5. LASIX [Concomitant]
  6. VITAMIN K TAB [Concomitant]
  7. PRILOSEC [Concomitant]
  8. LIPITOR [Concomitant]
  9. ALDACTONE [Concomitant]

REACTIONS (3)
  - BALANCE DISORDER [None]
  - CYSTITIS [None]
  - PNEUMONIA ASPIRATION [None]
